FAERS Safety Report 8179572-X (Version None)
Quarter: 2012Q1

REPORT INFORMATION
  Report Type: 
  Country: None (occurrence: None)
  Receive Date: 20120302
  Receipt Date: 20120228
  Transmission Date: 20120608
  Serious: Yes (Life-Threatening, Hospitalization)
  Sender: FDA-Public Use
  Company Number: JP-SANOFI-AVENTIS-2012SA001486

PATIENT
  Age: 40 Year
  Sex: Male
  Weight: 66.4 kg

DRUGS (9)
  1. ZOLPIDEM [Suspect]
     Indication: SUICIDE ATTEMPT
     Dosage: DOSE- 5MGX 2 TIMES= 10 TABLETS
     Route: 048
  2. JANUVIA [Concomitant]
     Route: 048
  3. INSULIN [Concomitant]
     Dates: start: 20041201
  4. AMARYL [Suspect]
     Dosage: DOSE: OVERDOSEDOSE- 14 TABLETS
     Route: 048
     Dates: start: 20120101, end: 20120101
  5. AMARYL [Suspect]
     Dosage: DOSE: OVERDOSEDOSE- 14 TABLETS
     Route: 048
     Dates: start: 20120101, end: 20120101
  6. AMARYL [Suspect]
     Indication: DIABETES MELLITUS
     Route: 065
  7. ZOLPIDEM [Suspect]
     Route: 048
     Dates: start: 20120101, end: 20120101
  8. MIGLITOL [Concomitant]
     Route: 048
  9. AMARYL [Suspect]
     Indication: SUICIDE ATTEMPT
     Route: 065

REACTIONS (4)
  - MULTIPLE DRUG OVERDOSE INTENTIONAL [None]
  - CARDIOMYOPATHY [None]
  - HYPOGLYCAEMIA [None]
  - SUICIDE ATTEMPT [None]
